FAERS Safety Report 16896552 (Version 1)
Quarter: 2019Q4

REPORT INFORMATION
  Report Type: Spontaneous
  Country: US (occurrence: US)
  Receive Date: 20191008
  Receipt Date: 20191008
  Transmission Date: 20200122
  Serious: No
  Sender: FDA-Public Use
  Company Number: US-TARO-2018TAR00650

PATIENT
  Age: 14 Year
  Sex: Female

DRUGS (1)
  1. LORATADINE SYRUP (LORATADINE ORAL SOLUTION USP) 5MG/5ML [Suspect]
     Active Substance: LORATADINE
     Indication: RHINORRHOEA
     Dosage: 3-4 TEASPOONS, ONCE
     Route: 048
     Dates: start: 20180904, end: 20180904

REACTIONS (2)
  - Thirst [Unknown]
  - Accidental overdose [Unknown]

NARRATIVE: CASE EVENT DATE: 20180904
